FAERS Safety Report 10264783 (Version 1)
Quarter: 2014Q2

REPORT INFORMATION
  Report Type: Spontaneous
  Country: GB (occurrence: None)
  Receive Date: 20140624
  Receipt Date: 20140624
  Transmission Date: 20141212
  Serious: Yes (Other)
  Sender: FDA-Public Use
  Company Number: AUR-APL-2014-06585

PATIENT
  Sex: Female

DRUGS (1)
  1. CO-AMOXICLAV [Suspect]
     Indication: ARTHRITIS BACTERIAL
     Dosage: 625 MG, 3 TIMES A DAY, UNKNOWN
     Dates: start: 20140523, end: 20140530

REACTIONS (2)
  - Vulvovaginal burning sensation [None]
  - Exposure via body fluid [None]
